FAERS Safety Report 9397025 (Version 1)
Quarter: 2013Q3

REPORT INFORMATION
  Report Type: Spontaneous
  Country: IE (occurrence: IE)
  Receive Date: 20130712
  Receipt Date: 20130712
  Transmission Date: 20140515
  Serious: Yes (Hospitalization)
  Sender: FDA-Public Use
  Company Number: IE-AMGEN-IRLSP2013048400

PATIENT
  Age: 37 Year
  Sex: Female

DRUGS (2)
  1. NEULASTA [Suspect]
     Indication: BREAST CANCER
     Dosage: 6 MG, POST CHEMO
     Route: 058
     Dates: start: 20130708
  2. CHEMOTHERAPEUTICS [Concomitant]
     Indication: BREAST CANCER
     Dosage: UNK

REACTIONS (1)
  - Hospitalisation [Unknown]
